FAERS Safety Report 5369814-8 (Version None)
Quarter: 2007Q2

REPORT INFORMATION
  Report Type: 
  Country: None (occurrence: None)
  Receive Date: 20070621
  Receipt Date: 20070612
  Transmission Date: 20071010
  Serious: Yes (Hospitalization)
  Sender: FDA-Public Use
  Company Number: 163-21880-07060657

PATIENT
  Age: 55 Year
  Sex: Male

DRUGS (1)
  1. REVLIMID [Suspect]
     Indication: MULTIPLE MYELOMA
     Dosage: 10 MG, DAYS 1-21 EVERY 28 DAYS, ORAL
     Route: 048
     Dates: start: 20070315

REACTIONS (1)
  - ANEURYSM [None]
